FAERS Safety Report 23099740 (Version 2)
Quarter: 2023Q4

REPORT INFORMATION
  Report Type: Spontaneous
  Country: US (occurrence: US)
  Receive Date: 20231024
  Receipt Date: 20231030
  Transmission Date: 20240109
  Serious: No
  Sender: FDA-Public Use
  Company Number: US-SA-SAC20231024000089

PATIENT
  Age: 79 Year
  Sex: Male

DRUGS (16)
  1. DUPIXENT [Suspect]
     Active Substance: DUPILUMAB
     Indication: Dermatitis atopic
     Dosage: 300 MG, QOW
     Route: 058
     Dates: start: 20230926
  2. ALPRAZOLAM [Concomitant]
     Active Substance: ALPRAZOLAM
  3. CLOBETASOL [Concomitant]
     Active Substance: CLOBETASOL
  4. FLONASE [Concomitant]
     Active Substance: FLUTICASONE PROPIONATE
  5. GABAPENTIN [Concomitant]
     Active Substance: GABAPENTIN
  6. KETOCONAZOLE [Concomitant]
     Active Substance: KETOCONAZOLE
  7. KETOROLAC [Concomitant]
     Active Substance: KETOROLAC TROMETHAMINE
  8. MOXIFLOXACIN [Concomitant]
     Active Substance: MOXIFLOXACIN
  9. PRAVASTATIN [Concomitant]
     Active Substance: PRAVASTATIN
  10. PREDNISOLONE [Concomitant]
     Active Substance: PREDNISOLONE
     Dosage: UNK
  11. VITAMIN C [Concomitant]
     Active Substance: ASCORBIC ACID
  12. VITAMINS NOS [Concomitant]
     Active Substance: VITAMINS
  13. TRIAMCINOLONE [Concomitant]
     Active Substance: TRIAMCINOLONE
  14. ACETAMINOPHEN [Concomitant]
     Active Substance: ACETAMINOPHEN
  15. COENZYME Q10 [Concomitant]
     Active Substance: DIETARY SUPPLEMENT\UBIDECARENONE
  16. GLUCOSAMINE /CHOND [CHONDROITIN SULFATE SODIUM;GLUCOSAMINE HYDROCHLORI [Concomitant]

REACTIONS (5)
  - Pain [Unknown]
  - Infection [Unknown]
  - Pyrexia [Unknown]
  - Hyperhidrosis [Unknown]
  - Rash [Unknown]

NARRATIVE: CASE EVENT DATE: 20230101
